FAERS Safety Report 5591974-4 (Version None)
Quarter: 2008Q1

REPORT INFORMATION
  Report Type: 
  Country: None (occurrence: None)
  Receive Date: 20080115
  Receipt Date: 20080107
  Transmission Date: 20080703
  Serious: Yes (Hospitalization, Other)
  Sender: FDA-Public Use
  Company Number: US-ELI_LILLY_AND_COMPANY-US200801001160

PATIENT
  Sex: Female
  Weight: 77.098 kg

DRUGS (1)
  1. HUMALOG [Suspect]

REACTIONS (9)
  - ABDOMINAL PAIN UPPER [None]
  - BLOOD BICARBONATE DECREASED [None]
  - BLOOD GLUCOSE INCREASED [None]
  - BLOOD POTASSIUM DECREASED [None]
  - DEHYDRATION [None]
  - DIABETIC KETOACIDOSIS [None]
  - MALAISE [None]
  - NAUSEA [None]
  - VOMITING [None]
